FAERS Safety Report 16687005 (Version 2)
Quarter: 2020Q3

REPORT INFORMATION
  Report Type: Spontaneous
  Country: JP (occurrence: JP)
  Receive Date: 20190809
  Receipt Date: 20200706
  Transmission Date: 20201102
  Serious: Yes (Hospitalization)
  Sender: FDA-Public Use
  Company Number: JP-ROCHE-2374797

PATIENT
  Age: 75 Year
  Sex: Male
  Weight: 51 kg

DRUGS (16)
  1. NOVOEIGHT [Suspect]
     Active Substance: ANTIHEMOPHILIC FACTOR, HUMAN RECOMBINANT
     Route: 065
     Dates: start: 20190728
  2. BROTIZOLAM [Concomitant]
     Active Substance: BROTIZOLAM
     Dosage: DOSAGE IS UNCERTAIN.
     Route: 065
  3. HEMLIBRA [Suspect]
     Active Substance: EMICIZUMAB-KXWH
     Route: 058
     Dates: start: 20190719
  4. NOVOEIGHT [Suspect]
     Active Substance: ANTIHEMOPHILIC FACTOR, HUMAN RECOMBINANT
     Indication: HAEMOPHILIA A WITHOUT INHIBITORS
     Route: 065
     Dates: start: 20190716
  5. LANSOPRAZOLE. [Concomitant]
     Active Substance: LANSOPRAZOLE
     Dosage: DOSAGE IS UNCERTAIN.
     Route: 065
  6. NORVASC [Concomitant]
     Active Substance: AMLODIPINE BESYLATE
  7. ZOLPIDEM TARTRATE. [Concomitant]
     Active Substance: ZOLPIDEM TARTRATE
     Dosage: DOSAGE IS UNCERTAIN.
     Route: 065
  8. BETAHISTINE MESILATE [Concomitant]
     Active Substance: BETAHISTINE MESILATE
     Dosage: DOSAGE IS UNCERTAIN.
     Route: 065
     Dates: start: 20190104
  9. DIFENIDOL HYDROCHLORIDE [Concomitant]
     Active Substance: DIPHENIDOL HYDROCHLORIDE
     Dosage: DOSAGE IS UNCERTAIN.
     Route: 065
     Dates: start: 20190104
  10. NOVOEIGHT [Suspect]
     Active Substance: ANTIHEMOPHILIC FACTOR, HUMAN RECOMBINANT
     Route: 065
     Dates: start: 20190726
  11. HEMLIBRA [Suspect]
     Active Substance: EMICIZUMAB-KXWH
     Indication: HAEMOPHILIA A WITHOUT INHIBITORS
     Route: 058
     Dates: start: 20190705
  12. HEMLIBRA [Suspect]
     Active Substance: EMICIZUMAB-KXWH
     Route: 058
     Dates: start: 20190712
  13. HEMLIBRA [Suspect]
     Active Substance: EMICIZUMAB-KXWH
     Route: 058
     Dates: start: 20190726
  14. NOVOEIGHT [Suspect]
     Active Substance: ANTIHEMOPHILIC FACTOR, HUMAN RECOMBINANT
     Route: 065
     Dates: start: 20190719
  15. NOVOEIGHT [Suspect]
     Active Substance: ANTIHEMOPHILIC FACTOR, HUMAN RECOMBINANT
     Route: 065
     Dates: start: 20190730
  16. MAGNESIUM OXIDE. [Concomitant]
     Active Substance: MAGNESIUM OXIDE
     Dosage: DOSAGE IS UNCERTAIN.
     Route: 065

REACTIONS (1)
  - Haemarthrosis [Recovered/Resolved]

NARRATIVE: CASE EVENT DATE: 20190712
